FAERS Safety Report 20907444 (Version 5)
Quarter: 2025Q1

REPORT INFORMATION
  Report Type: Report from Study
  Country: US (occurrence: US)
  Receive Date: 20220602
  Receipt Date: 20250122
  Transmission Date: 20250408
  Serious: Yes (Hospitalization, Other)
  Sender: TAKEDA
  Company Number: US-TAKEDA-2022TUS036080

PATIENT
  Sex: Male
  Weight: 74 kg

DRUGS (18)
  1. HUMAN IMMUNOGLOBULIN G [Suspect]
     Active Substance: HUMAN IMMUNOGLOBULIN G
     Indication: Myasthenia gravis
     Dosage: 400 MILLIGRAM/KILOGRAM, Q4WEEKS
     Dates: start: 20220302
  2. HUMAN IMMUNOGLOBULIN G [Suspect]
     Active Substance: HUMAN IMMUNOGLOBULIN G
     Dosage: 30 GRAM, Q5WEEKS
  3. DIPHENHYDRAMINE [Concomitant]
     Active Substance: DIPHENHYDRAMINE
  4. VITAMIN D3 [Concomitant]
     Active Substance: CHOLECALCIFEROL
  5. AZATHIOPRINE [Concomitant]
     Active Substance: AZATHIOPRINE
  6. ACETAMINOPHEN [Concomitant]
     Active Substance: ACETAMINOPHEN
  7. SODIUM CHLORIDE [Concomitant]
     Active Substance: SODIUM CHLORIDE
  8. SODIUM CHLORIDE [Concomitant]
     Active Substance: SODIUM CHLORIDE
  9. PREDNISONE [Concomitant]
     Active Substance: PREDNISONE
  10. EPINEPHRINE [Concomitant]
     Active Substance: EPINEPHRINE
  11. PYRIDOSTIGMINE BROMIDE [Concomitant]
     Active Substance: PYRIDOSTIGMINE BROMIDE
  12. XARELTO [Concomitant]
     Active Substance: RIVAROXABAN
  13. MIEBO [Concomitant]
     Active Substance: PERFLUOROHEXYLOCTANE
  14. DIPHENHYDRAMINE HYDROCHLORIDE [Concomitant]
     Active Substance: DIPHENHYDRAMINE HYDROCHLORIDE
  15. THERATEARS [Concomitant]
     Active Substance: CARBOXYMETHYLCELLULOSE SODIUM
  16. EYSUVIS [Concomitant]
     Active Substance: LOTEPREDNOL ETABONATE
  17. GAMUNEX [Concomitant]
     Active Substance: HUMAN IMMUNOGLOBULIN G
  18. DEXTROSE [Concomitant]
     Active Substance: DEXTROSE MONOHYDRATE

REACTIONS (8)
  - Pulmonary embolism [Unknown]
  - Deep vein thrombosis [Unknown]
  - COVID-19 [Unknown]
  - Off label use [Unknown]
  - Weight fluctuation [Unknown]
  - Dyspnoea [Unknown]
  - Rash [Unknown]
  - Pain in extremity [Unknown]
